FAERS Safety Report 8606115-6 (Version None)
Quarter: 2012Q3

REPORT INFORMATION
  Report Type: 
  Country: None (occurrence: None)
  Receive Date: 20120820
  Receipt Date: 20120813
  Transmission Date: 20120928
  Serious: Yes (Other)
  Sender: FDA-Public Use
  Company Number: CH-BAYER-2012-071892

PATIENT
  Age: 53 Year
  Sex: Male

DRUGS (1)
  1. NEXAVAR [Suspect]
     Indication: HEPATIC NEOPLASM MALIGNANT
     Dosage: 400 MG, BID
     Route: 048
     Dates: start: 20120602, end: 20120718

REACTIONS (5)
  - METASTASES TO BONE [None]
  - DYSPNOEA [None]
  - FATIGUE [None]
  - MOUTH HAEMORRHAGE [None]
  - EPISTAXIS [None]
